FAERS Safety Report 26161182 (Version 1)
Quarter: 2025Q4

REPORT INFORMATION
  Report Type: Spontaneous
  Country: US (occurrence: None)
  Receive Date: 20251216
  Receipt Date: 20251216
  Transmission Date: 20260118
  Serious: No
  Sender: ENDO
  Company Number: US-ENDO USA, INC.-2025-001700

PATIENT
  Sex: Male

DRUGS (1)
  1. XIAFLEX [Suspect]
     Active Substance: COLLAGENASE CLOSTRIDIUM HISTOLYTICUM
     Indication: Peyronie^s disease
     Dosage: UNK UNKNOWN, UNKNOWN (FIRST INJECTION OF FIRST CYCLE TOWARDS BASE OF PENIS)
     Dates: start: 20250722, end: 20250722

REACTIONS (2)
  - Lymphadenopathy [Not Recovered/Not Resolved]
  - Penile blister [Not Recovered/Not Resolved]

NARRATIVE: CASE EVENT DATE: 20250701
